FAERS Safety Report 5418578-8 (Version None)
Quarter: 2007Q3

REPORT INFORMATION
  Report Type: 
  Country: None (occurrence: None)
  Receive Date: 20070817
  Receipt Date: 20070809
  Transmission Date: 20080115
  Serious: Yes (Disabling, Other)
  Sender: FDA-Public Use
  Company Number: NL-GENENTECH-246112

PATIENT
  Sex: Female
  Weight: 88.5 kg

DRUGS (10)
  1. RITUXAN [Suspect]
     Indication: RHEUMATOID ARTHRITIS
     Dosage: 1000 MG, UNK
     Dates: start: 20061123
  2. METHOTREXATE [Concomitant]
     Indication: RHEUMATOID ARTHRITIS
     Dosage: 25 MG, 1/WEEK
     Route: 058
     Dates: start: 20011022
  3. PREDNISONE TAB [Concomitant]
     Indication: RHEUMATOID ARTHRITIS
     Dosage: 10 MG, QD
     Dates: start: 20020319
  4. MONOCEDOCARD [Concomitant]
     Indication: HYPERTENSION
     Dosage: 50 MG, QD
  5. RENITEC [Concomitant]
     Indication: HYPERTENSION
     Dosage: 10 MG, QD
  6. THYRAX [Concomitant]
     Indication: HYPOTHYROIDISM
  7. AMARYL [Concomitant]
     Indication: DIABETES MELLITUS
  8. GLUCOVANCE [Concomitant]
     Indication: DIABETES MELLITUS
  9. LANTUS [Concomitant]
     Indication: DIABETES MELLITUS
     Route: 058
  10. NOVORAPID [Concomitant]
     Indication: DIABETES MELLITUS
     Route: 058

REACTIONS (1)
  - ARTHRITIS [None]
